FAERS Safety Report 20418131 (Version 2)
Quarter: 2022Q1

REPORT INFORMATION
  Report Type: Spontaneous
  Country: US (occurrence: US)
  Receive Date: 20220202
  Receipt Date: 20220309
  Transmission Date: 20220423
  Serious: No
  Sender: FDA-Public Use
  Company Number: US-LUPIN PHARMACEUTICALS INC.-2022-01134

PATIENT
  Age: 67 Year
  Sex: Male
  Weight: 89.342 kg

DRUGS (2)
  1. CELECOXIB [Suspect]
     Active Substance: CELECOXIB
     Indication: Inflammation
     Dosage: 1 DOSAGE FORM, QD
     Route: 048
     Dates: start: 20211228
  2. CELECOXIB [Suspect]
     Active Substance: CELECOXIB
     Dosage: 2 DOSAGE FORM, QD (DOSE INCREASED)
     Route: 048
     Dates: end: 202201

REACTIONS (3)
  - Drug ineffective for unapproved indication [Unknown]
  - Product physical issue [Unknown]
  - Off label use [Unknown]
